FAERS Safety Report 14027383 (Version 1)
Quarter: 2017Q3

REPORT INFORMATION
  Report Type: Spontaneous
  Country: TH (occurrence: TH)
  Receive Date: 20170929
  Receipt Date: 20170929
  Transmission Date: 20171128
  Serious: Yes (Death)
  Sender: FDA-Public Use
  Company Number: TH-BAXTER-2017BAX034053

PATIENT
  Age: 77 Year
  Sex: Female

DRUGS (2)
  1. DIANEAL LOW CALCIUM PERITONEAL DIALYSIS SOLUTION WITH DEXTROSE [Suspect]
     Active Substance: CALCIUM CHLORIDE\DEXTROSE\MAGNESIUM CHLORIDE\SODIUM CHLORIDE\SODIUM LACTATE
     Indication: END STAGE RENAL DISEASE
     Route: 033
     Dates: start: 20170220, end: 20170923
  2. DIANEAL LOW CALCIUM PERITONEAL DIALYSIS SOLUTION WITH DEXTROSE [Suspect]
     Active Substance: CALCIUM CHLORIDE\DEXTROSE\MAGNESIUM CHLORIDE\SODIUM CHLORIDE\SODIUM LACTATE
     Indication: FLUID OVERLOAD

REACTIONS (1)
  - Cardiac failure congestive [Fatal]

NARRATIVE: CASE EVENT DATE: 20170923
